FAERS Safety Report 5410936-0 (Version None)
Quarter: 2007Q3

REPORT INFORMATION
  Report Type: 
  Country: None (occurrence: None)
  Receive Date: 20070809
  Receipt Date: 20070809
  Transmission Date: 20080115
  Serious: No
  Sender: FDA-Public Use
  Company Number: None

PATIENT
  Age: 41 Year
  Sex: Female
  Weight: 68.0396 kg

DRUGS (1)
  1. CIPRO [Suspect]
     Indication: URINARY TRACT INFECTION
     Dosage: 1 DAILY PO
     Route: 048
     Dates: start: 20070118, end: 20070124

REACTIONS (3)
  - MOBILITY DECREASED [None]
  - PAIN [None]
  - TENDON DISORDER [None]
